FAERS Safety Report 16790985 (Version 2)
Quarter: 2019Q3

REPORT INFORMATION
  Report Type: Spontaneous
  Country: US (occurrence: US)
  Receive Date: 20190910
  Receipt Date: 20190917
  Transmission Date: 20191005
  Serious: Yes (Hospitalization)
  Sender: FDA-Public Use
  Company Number: US-PFIZER INC-2019387938

PATIENT
  Age: 61 Year
  Sex: Male

DRUGS (1)
  1. VIAGRA [Suspect]
     Active Substance: SILDENAFIL CITRATE
     Dosage: 100 MG, UNK

REACTIONS (6)
  - Spinal stenosis [Unknown]
  - Malaise [Unknown]
  - Abdominal discomfort [Unknown]
  - Neuralgia [Unknown]
  - Diabetes mellitus [Unknown]
  - Blood pressure abnormal [Unknown]
